FAERS Safety Report 8990532 (Version 1)
Quarter: 2012Q4

REPORT INFORMATION
  Report Type: 
  Country: DK (occurrence: JP)
  Receive Date: 20121228
  Receipt Date: 20121228
  Transmission Date: 20130627
  Serious: Yes (Hospitalization)
  Sender: FDA-Public Use
  Company Number: JP-FRI-1000028239

PATIENT
  Sex: Female

DRUGS (5)
  1. LEXAPRO [Suspect]
     Dosage: 10 mg
     Route: 048
     Dates: start: 20111101
  2. LEXAPRO [Suspect]
     Dosage: 5 mg
     Route: 048
     Dates: start: 20111116
  3. RHEUMATREX [Concomitant]
     Indication: RHEUMATIC DISORDER
     Route: 048
  4. REMICADE [Concomitant]
     Indication: RHEUMATIC DISORDER
     Route: 041
  5. DUROTEP [Concomitant]
     Indication: RHEUMATIC DISORDER
     Route: 061

REACTIONS (2)
  - Inappropriate antidiuretic hormone secretion [Recovered/Resolved]
  - Dizziness [Recovered/Resolved]
